FAERS Safety Report 4823742-2 (Version None)
Quarter: 2005Q4

REPORT INFORMATION
  Report Type: 
  Country: None (occurrence: None)
  Receive Date: 20051109
  Receipt Date: 20051031
  Transmission Date: 20060501
  Serious: Yes (Other)
  Sender: FDA-Public Use
  Company Number: GB-ROCHE-423161

PATIENT
  Age: 40 Year
  Sex: Male
  Weight: 113.6 kg

DRUGS (3)
  1. CAPECITABINE [Suspect]
     Route: 048
     Dates: start: 20040928, end: 20051018
  2. BEVACIZUMAB [Suspect]
     Route: 042
     Dates: start: 20040928, end: 20051018
  3. PYRIDOXINE HYDROCHLORIDE [Concomitant]

REACTIONS (1)
  - PALPITATIONS [None]
